FAERS Safety Report 15027895 (Version 2)
Quarter: 2018Q3

REPORT INFORMATION
  Report Type: Spontaneous
  Country: US (occurrence: US)
  Receive Date: 20180619
  Receipt Date: 20180703
  Transmission Date: 20181010
  Serious: Yes (Hospitalization, Other)
  Sender: FDA-Public Use
  Company Number: US-TORRENT-00006249

PATIENT
  Age: 47 Year
  Sex: Female

DRUGS (1)
  1. MINOCYCLINE [Suspect]
     Active Substance: MINOCYCLINE\MINOCYCLINE HYDROCHLORIDE
     Indication: ACNE
     Dosage: UNKNOWN

REACTIONS (8)
  - Vasculitis [Recovered/Resolved]
  - Joint swelling [Recovered/Resolved]
  - Rash [Recovered/Resolved]
  - Night sweats [Recovered/Resolved]
  - Arthralgia [Recovered/Resolved]
  - C-reactive protein increased [Recovered/Resolved]
  - Mononeuropathy multiplex [Recovered/Resolved]
  - Myalgia [Recovered/Resolved]
